FAERS Safety Report 8987547 (Version 1)
Quarter: 2012Q4

REPORT INFORMATION
  Report Type: 
  Country: US (occurrence: US)
  Receive Date: 20121227
  Receipt Date: 20121227
  Transmission Date: 20130627
  Serious: Yes (Other)
  Sender: FDA-Public Use
  Company Number: US-BAYER-2012-134309

PATIENT
  Age: 54 Year
  Sex: Female
  Weight: 68.03 kg

DRUGS (5)
  1. BAYER EXTRA STRENGTH BACK + BODY PAIN [Suspect]
     Indication: GENERAL BODY PAIN
     Dosage: 2 DF, ONCE
     Route: 048
     Dates: start: 20121208, end: 20121208
  2. PROGESTERINE [Concomitant]
  3. VITAMIN DRINK [Concomitant]
  4. SYNTHROID [Concomitant]
  5. ESTROGEN [Concomitant]

REACTIONS (7)
  - Haemorrhage [Recovered/Resolved]
  - Malaise [Recovered/Resolved]
  - Fatigue [Not Recovered/Not Resolved]
  - Faeces discoloured [Recovered/Resolved]
  - Haematochezia [Recovered/Resolved]
  - Hyperhidrosis [Recovered/Resolved]
  - Anaemia [None]
